FAERS Safety Report 13685473 (Version 1)
Quarter: 2017Q2

REPORT INFORMATION
  Report Type: Report from Study
  Country: None (occurrence: US)
  Receive Date: 20170623
  Receipt Date: 20170623
  Transmission Date: 20170830
  Serious: Yes (Hospitalization)
  Sender: FDA-Public Use
  Company Number: US-ABBVIE-14P-163-1237589-00

PATIENT
  Age: 57 Year
  Sex: Male
  Weight: 83 kg

DRUGS (18)
  1. BENDAMUSTINE [Suspect]
     Active Substance: BENDAMUSTINE
     Indication: NON-HODGKIN^S LYMPHOMA
     Dosage: CYCLE 1-2: DAY 2 AND 3, CYCLE 3 }: DAY 1 AND 2 (28-DAY CYCLE)
     Route: 042
     Dates: start: 20140213, end: 20140418
  2. SYMBICORT [Concomitant]
     Active Substance: BUDESONIDE\FORMOTEROL FUMARATE DIHYDRATE
     Indication: CHRONIC OBSTRUCTIVE PULMONARY DISEASE
  3. NEUPOGEN [Concomitant]
     Active Substance: FILGRASTIM
     Indication: FULL BLOOD COUNT DECREASED
     Route: 058
     Dates: start: 20140410, end: 20140416
  4. PRILOSEC [Concomitant]
     Active Substance: OMEPRAZOLE MAGNESIUM
     Indication: ABDOMINAL DISCOMFORT
     Dates: start: 20140307
  5. SYMBICORT [Concomitant]
     Active Substance: BUDESONIDE\FORMOTEROL FUMARATE DIHYDRATE
     Indication: DYSPNOEA
     Dates: start: 201312
  6. PRILOSEC [Concomitant]
     Active Substance: OMEPRAZOLE MAGNESIUM
     Indication: DYSPEPSIA
  7. NEULASTA [Concomitant]
     Active Substance: PEGFILGRASTIM
     Indication: FULL BLOOD COUNT DECREASED
     Route: 058
     Dates: start: 20140419, end: 20140419
  8. PRILOSEC [Concomitant]
     Active Substance: OMEPRAZOLE MAGNESIUM
     Indication: PROPHYLAXIS
  9. DIPHENHYDRAMINE. [Concomitant]
     Active Substance: DIPHENHYDRAMINE
     Indication: PROPHYLAXIS
     Dates: start: 20140212
  10. FOSAPREPITANT [Concomitant]
     Active Substance: FOSAPREPITANT
     Indication: PROPHYLAXIS OF NAUSEA AND VOMITING
     Dates: start: 20140314
  11. METOPROLOL. [Concomitant]
     Active Substance: METOPROLOL
     Indication: ARRHYTHMIA
     Dates: start: 201312
  12. ONDANSETRON [Concomitant]
     Active Substance: ONDANSETRON
     Indication: PROPHYLAXIS OF NAUSEA AND VOMITING
     Dates: start: 20140213
  13. VENETOCLAX [Suspect]
     Active Substance: VENETOCLAX
     Indication: NON-HODGKIN^S LYMPHOMA
     Dosage: ON DAYS 1-7 OF EACH 28-DAY CYCLE
     Route: 048
     Dates: start: 20140213, end: 20140423
  14. RITUXIMAB [Suspect]
     Active Substance: RITUXIMAB
     Indication: NON-HODGKIN^S LYMPHOMA
     Dosage: DAY 1 OF EACH 28 DAY CYCLE
     Route: 042
     Dates: start: 20140212, end: 20140417
  15. ALBUTEROL (PROVENTIL) [Concomitant]
     Indication: DYSPNOEA
     Dates: start: 20140508
  16. LIPITOR [Concomitant]
     Active Substance: ATORVASTATIN CALCIUM
     Indication: HYPERLIPIDAEMIA
     Dates: start: 201312, end: 20140410
  17. COENZYME Q20 [Concomitant]
     Indication: VITAMIN SUPPLEMENTATION
     Dates: start: 201312, end: 20140508
  18. ACETAMINOPHEN. [Concomitant]
     Active Substance: ACETAMINOPHEN
     Indication: PROPHYLAXIS
     Dates: start: 20140214

REACTIONS (1)
  - Influenza [Recovered/Resolved]

NARRATIVE: CASE EVENT DATE: 20140512
